FAERS Safety Report 9802570 (Version 1)
Quarter: 2014Q1

REPORT INFORMATION
  Report Type: Not Available
  Country: FR (occurrence: FR)
  Receive Date: 20140108
  Receipt Date: 20140108
  Transmission Date: 20141002
  Serious: Yes (Other)
  Sender: FDA-Public Use
  Company Number: FR-BEH-2014039923

PATIENT
  Age: 63 Year
  Sex: Female

DRUGS (8)
  1. PRIVIGEN [Suspect]
     Indication: MUSCULAR WEAKNESS
     Dosage: 20 G, 1 DAY
     Route: 042
     Dates: start: 20131205, end: 20131209
  2. CYMEVAN [Suspect]
     Indication: INFECTION
     Route: 048
  3. INEXIUM [Concomitant]
  4. MESTINON [Concomitant]
  5. TIORFAN [Concomitant]
  6. FILGRASTIM [Concomitant]
     Indication: GRANULOCYTE COUNT DECREASED
     Dates: start: 20131106
  7. FILGRASTIM [Concomitant]
     Dates: start: 20131207
  8. FILGRASTIM [Concomitant]
     Dates: start: 20131211

REACTIONS (4)
  - Neutropenia [Recovered/Resolved]
  - Leukopenia [Recovered/Resolved]
  - Neutropenia [Recovered/Resolved with Sequelae]
  - Leukopenia [Recovered/Resolved]
